FAERS Safety Report 10025852 (Version 3)
Quarter: 2014Q2

REPORT INFORMATION
  Report Type: Spontaneous
  Country: US (occurrence: US)
  Receive Date: 20140320
  Receipt Date: 20140402
  Transmission Date: 20141212
  Serious: Yes (Other)
  Sender: FDA-Public Use
  Company Number: US-DENDREON CORPORATION-2014PROUSA03577

PATIENT
  Age: 73 Year
  Sex: Male
  Weight: 116.55 kg

DRUGS (1)
  1. PROVENGE [Suspect]
     Indication: PROSTATE CANCER METASTATIC
     Dosage: 250 ML, SINGLE
     Route: 042
     Dates: start: 20140227, end: 20140227

REACTIONS (1)
  - Pulmonary embolism [Unknown]
